FAERS Safety Report 8443435-2 (Version None)
Quarter: 2012Q2

REPORT INFORMATION
  Report Type: 
  Country: None (occurrence: None)
  Receive Date: 20120612
  Receipt Date: 20120612
  Transmission Date: 20120825
  Serious: No
  Sender: FDA-Public Use
  Company Number: None

PATIENT

DRUGS (4)
  1. HYDROMORPHONE HCL [Suspect]
  2. HYDROMORPHONE 2500 MCG/250 ML PLUS BUPIVACAINE 0.0625% [Suspect]
  3. HYDROMORPHONE HCL [Suspect]
  4. FENTANYL 500 MCG/250 ML PLUS BUPIVACAINE 0.125% [Suspect]

REACTIONS (3)
  - MEDICATION ERROR [None]
  - DRUG DISPENSING ERROR [None]
  - WRONG DRUG ADMINISTERED [None]
